FAERS Safety Report 13994520 (Version 1)
Quarter: 2017Q3

REPORT INFORMATION
  Report Type: Spontaneous
  Country: IT (occurrence: IT)
  Receive Date: 20170920
  Receipt Date: 20170920
  Transmission Date: 20171128
  Serious: Yes (Hospitalization)
  Sender: FDA-Public Use
  Company Number: IT-MYLANLABS-2017M1058480

PATIENT
  Age: 69 Year
  Sex: Female

DRUGS (4)
  1. BEVACIZUMAB. [Concomitant]
     Active Substance: BEVACIZUMAB
     Indication: METASTASES TO PERITONEUM
     Dosage: 5 MG/KG ON DAY 1 EVERY 2 WEEKS
     Route: 065
  2. FLUOROURACIL. [Suspect]
     Active Substance: FLUOROURACIL
     Indication: METASTASES TO PERITONEUM
     Dosage: 3000 MG/M 2 AS A 46-H INFUSION ON DAY 1
     Route: 050
  3. OXALIPLATIN. [Concomitant]
     Active Substance: OXALIPLATIN
     Indication: METASTASES TO PERITONEUM
     Dosage: 85 MG/M 2 ON DAY 1
     Route: 065
  4. FOLINIC ACID [Concomitant]
     Active Substance: LEUCOVORIN
     Indication: METASTASES TO PERITONEUM
     Dosage: 500 MG/M 2
     Route: 065

REACTIONS (5)
  - Diarrhoea [Unknown]
  - Dehydration [Unknown]
  - Stomatitis [Unknown]
  - Toxicity to various agents [Unknown]
  - Acute kidney injury [Unknown]

NARRATIVE: CASE EVENT DATE: 201604
